FAERS Safety Report 5218769-5 (Version None)
Quarter: 2007Q1

REPORT INFORMATION
  Report Type: 
  Country: None (occurrence: None)
  Receive Date: 20070123
  Receipt Date: 20070117
  Transmission Date: 20070707
  Serious: Yes (Hospitalization, Other)
  Sender: FDA-Public Use
  Company Number: HQWYE266919JUN06

PATIENT
  Age: 72 Year
  Sex: Female

DRUGS (14)
  1. RAPAMUNE [Suspect]
     Indication: PROPHYLAXIS AGAINST TRANSPLANT REJECTION
     Dosage: SEE IMAGE
     Route: 048
     Dates: start: 20060601, end: 20060601
  2. RAPAMUNE [Suspect]
     Indication: PROPHYLAXIS AGAINST TRANSPLANT REJECTION
     Dosage: SEE IMAGE
     Route: 048
     Dates: start: 20060602, end: 20060810
  3. RAPAMUNE [Suspect]
     Indication: PROPHYLAXIS AGAINST TRANSPLANT REJECTION
     Dosage: SEE IMAGE
     Route: 048
     Dates: start: 20060811, end: 20060903
  4. MYCOPHENOLATE MOFETIL [Suspect]
     Indication: PROPHYLAXIS AGAINST TRANSPLANT REJECTION
     Dosage: SEE IMAGE
     Route: 048
     Dates: start: 20060501, end: 20060723
  5. MYCOPHENOLATE MOFETIL [Suspect]
     Indication: PROPHYLAXIS AGAINST TRANSPLANT REJECTION
     Dosage: SEE IMAGE
     Route: 048
     Dates: start: 20060724, end: 20060805
  6. MYCOPHENOLATE MOFETIL [Suspect]
     Indication: PROPHYLAXIS AGAINST TRANSPLANT REJECTION
     Dosage: SEE IMAGE
     Route: 048
     Dates: start: 20060816, end: 20060903
  7. BACTRIM [Concomitant]
  8. PREDNISONE TAB [Concomitant]
  9. PEPCID [Concomitant]
  10. NYSTATIN [Concomitant]
  11. MULTIVITAMINS, PLAIN (MULTIVITAMINS, PLAIN) [Concomitant]
  12. FOLIC ACID [Concomitant]
  13. FERROUS SULFATE TAB [Concomitant]
  14. PROCRIT [Concomitant]

REACTIONS (2)
  - DIARRHOEA [None]
  - GASTROINTESTINAL ULCER HAEMORRHAGE [None]
